FAERS Safety Report 5217307-0 (Version None)
Quarter: 2007Q1

REPORT INFORMATION
  Report Type: 
  Country: None (occurrence: None)
  Receive Date: 20070124
  Receipt Date: 20051228
  Transmission Date: 20070707
  Serious: No
  Sender: FDA-Public Use
  Company Number: US-GLAXOSMITHKLINE-A0587073A

PATIENT
  Age: 55 Year
  Sex: Female

DRUGS (2)
  1. PAXIL CR [Suspect]
     Dosage: 25MG PER DAY
     Route: 048
     Dates: start: 20051001
  2. CENTRUM SILVER [Concomitant]

REACTIONS (2)
  - ANXIETY [None]
  - PALPITATIONS [None]
